FAERS Safety Report 6800776-X (Version None)
Quarter: 2010Q2

REPORT INFORMATION
  Report Type: 
  Country: None (occurrence: None)
  Receive Date: 20100629
  Receipt Date: 20100618
  Transmission Date: 20101027
  Serious: Yes (Other)
  Sender: FDA-Public Use
  Company Number: FR-SANOFI-AVENTIS-2010SA011665

PATIENT
  Age: 62 Year
  Sex: Female
  Weight: 47 kg

DRUGS (3)
  1. ARAVA [Suspect]
     Indication: RHEUMATOID ARTHRITIS
     Route: 048
     Dates: start: 20070101, end: 20091101
  2. IXPRIM [Concomitant]
     Route: 048
  3. ANTIINFLAMMATORY/ANTIRHEUMATIC NON-STEROIDS [Concomitant]
     Route: 048

REACTIONS (5)
  - DECREASED APPETITE [None]
  - HEPATOSPLENOMEGALY [None]
  - HYPERCALCAEMIA [None]
  - PORTAL HYPERTENSION [None]
  - WEIGHT DECREASED [None]
